FAERS Safety Report 5467732-8 (Version None)
Quarter: 2007Q3

REPORT INFORMATION
  Report Type: 
  Country: None (occurrence: None)
  Receive Date: 20070814
  Receipt Date: 20070517
  Transmission Date: 20080115
  Serious: No
  Sender: FDA-Public Use
  Company Number: 200713751US

PATIENT
  Age: 73 Year
  Sex: Female

DRUGS (18)
  1. APIDRA [Suspect]
     Indication: TYPE 2 DIABETES MELLITUS
     Dosage: 52 U QPM
     Dates: start: 20070514, end: 20070515
  2. POTASSIUM CHLORIDE [Concomitant]
  3. TOPROL-XL [Concomitant]
  4. FUROSEMIDE [Concomitant]
  5. IMDUR [Concomitant]
  6. ERGOCALCIFEROL (VIT D) [Concomitant]
  7. COZAAR [Concomitant]
  8. ESOMEPRAZOLE MAGNESIUM [Concomitant]
  9. IRON [Concomitant]
  10. GUAIFENESIN (MUCINEX) [Concomitant]
  11. FLUTICASONE PROPIONATE, SALMETEROL XINAFOATE (ADVAIR) [Concomitant]
  12. ALBUTEROL [Concomitant]
  13. AMINO ACIDS NOS [Concomitant]
  14. FRUCTOSE [Concomitant]
  15. VITAMINS NOS [Concomitant]
  16. MINERALS NOS [Concomitant]
  17. CARTHAMUS TINCTORIUS OIL [Concomitant]
  18. GLYCINE MAX SEED OIL (GLUCERNA) [Concomitant]

REACTIONS (4)
  - ASTHENIA [None]
  - CHEST PAIN [None]
  - MUSCLE SPASMS [None]
  - MYALGIA [None]
